FAERS Safety Report 23859106 (Version 2)
Quarter: 2024Q3

REPORT INFORMATION
  Report Type: Report from Study
  Country: GB (occurrence: GB)
  Receive Date: 20240515
  Receipt Date: 20240826
  Transmission Date: 20241016
  Serious: No
  Sender: SANDOZ
  Company Number: GB-SANDOZ-SDZ2024GB005916

PATIENT
  Sex: Male

DRUGS (2)
  1. HYRIMOZ [Suspect]
     Active Substance: ADALIMUMAB-ADAZ
     Indication: Psoriatic arthropathy
     Dosage: 40 MG, Q2W
     Route: 058
  2. HYRIMOZ [Suspect]
     Active Substance: ADALIMUMAB-ADAZ
     Indication: Psoriatic arthropathy
     Dosage: 40 MG, Q2W
     Route: 058

REACTIONS (4)
  - Fatigue [Unknown]
  - Incorrect dose administered [Unknown]
  - Needle issue [Unknown]
  - Syringe issue [Unknown]
